FAERS Safety Report 11064325 (Version 6)
Quarter: 2015Q3

REPORT INFORMATION
  Report Type: Spontaneous
  Country: US (occurrence: US)
  Receive Date: 20150424
  Receipt Date: 20150714
  Transmission Date: 20151125
  Serious: Yes (Death, Hospitalization, Other)
  Sender: FDA-Public Use
  Company Number: US-GILEAD-2015-0149620

PATIENT
  Age: 80 Year
  Sex: Female
  Weight: 70.6 kg

DRUGS (1)
  1. HARVONI [Suspect]
     Active Substance: LEDIPASVIR\SOFOSBUVIR
     Indication: PRODUCT USED FOR UNKNOWN INDICATION
     Dosage: UNK
     Route: 065

REACTIONS (10)
  - Coma [Unknown]
  - Dizziness [Unknown]
  - Death [Fatal]
  - Delirium [Unknown]
  - Amnesia [Unknown]
  - Metabolic encephalopathy [Unknown]
  - Pancytopenia [Unknown]
  - Hypothermia [Unknown]
  - Septic shock [Unknown]
  - Loss of consciousness [Unknown]
